FAERS Safety Report 5092656-8 (Version None)
Quarter: 2006Q3

REPORT INFORMATION
  Report Type: 
  Country: None (occurrence: None)
  Receive Date: 20060830
  Receipt Date: 20060822
  Transmission Date: 20061208
  Serious: Yes (Hospitalization)
  Sender: FDA-Public Use
  Company Number: PK-AVENTIS-200618848GDDC

PATIENT
  Age: 27 Year
  Sex: Female
  Weight: 64 kg

DRUGS (8)
  1. FLAGYL [Suspect]
     Indication: CAESAREAN SECTION
     Route: 042
     Dates: start: 20060816, end: 20060817
  2. FLAGYL [Suspect]
     Indication: POSTOPERATIVE CARE
     Route: 042
     Dates: start: 20060816, end: 20060817
  3. AUGMENTIN [Concomitant]
     Indication: CAESAREAN SECTION
     Route: 042
     Dates: start: 20060816, end: 20060817
  4. AUGMENTIN [Concomitant]
     Indication: POSTOPERATIVE CARE
     Route: 042
     Dates: start: 20060816, end: 20060817
  5. NALBUPHINE [Concomitant]
     Indication: CAESAREAN SECTION
     Route: 030
     Dates: start: 20060816, end: 20060817
  6. NALBUPHINE [Concomitant]
     Indication: POSTOPERATIVE CARE
     Route: 030
     Dates: start: 20060816, end: 20060817
  7. PHENERGAN HCL [Concomitant]
     Indication: CAESAREAN SECTION
     Route: 030
     Dates: start: 20060816, end: 20060817
  8. PHENERGAN HCL [Concomitant]
     Indication: POSTOPERATIVE CARE
     Route: 030
     Dates: start: 20060816, end: 20060817

REACTIONS (3)
  - CHILLS [None]
  - PALLOR [None]
  - PYREXIA [None]
